FAERS Safety Report 9100796 (Version 1)
Quarter: 2013Q1

REPORT INFORMATION
  Report Type: Report from Study
  Country: DE (occurrence: DE)
  Receive Date: 20130215
  Receipt Date: 20130215
  Transmission Date: 20140127
  Serious: Yes (Hospitalization)
  Sender: FDA-Public Use
  Company Number: DE-JNJFOC-20130206141

PATIENT
  Age: 11 Year
  Sex: Male
  Weight: 37.5 kg

DRUGS (7)
  1. REMICADE [Suspect]
     Indication: CROHN^S DISEASE
     Route: 042
     Dates: start: 20080320
  2. REMICADE [Suspect]
     Indication: CROHN^S DISEASE
     Route: 042
     Dates: start: 20101008, end: 20110726
  3. AZATHIOPRINE [Concomitant]
  4. VIANI FORTE [Concomitant]
  5. NASONEX [Concomitant]
  6. CYCLOSPORIN [Concomitant]
  7. HYPROMELLOSE [Concomitant]

REACTIONS (1)
  - Crohn^s disease [Recovered/Resolved with Sequelae]
